FAERS Safety Report 19638070 (Version 1)
Quarter: 2021Q3

REPORT INFORMATION
  Report Type: Report from Study
  Country: RU (occurrence: RU)
  Receive Date: 20210730
  Receipt Date: 20210730
  Transmission Date: 20211014
  Serious: Yes (Hospitalization)
  Sender: FDA-Public Use
  Company Number: RU-ASTRAZENECA-2021A646904

PATIENT
  Age: 18675 Day
  Sex: Male
  Weight: 100 kg

DRUGS (9)
  1. ATORVASTATIN [Concomitant]
     Active Substance: ATORVASTATIN
     Dates: start: 20210708
  2. ESPIRO [Concomitant]
     Active Substance: EPLERENONE
     Dates: start: 20210708
  3. PERINDOPRIL [Concomitant]
     Active Substance: PERINDOPRIL
     Dates: start: 20210708
  4. BRILINTA [Suspect]
     Active Substance: TICAGRELOR
     Indication: MYOCARDIAL INFARCTION
     Route: 048
     Dates: start: 20210708
  5. TORASEMIDE [Concomitant]
     Active Substance: TORSEMIDE
     Dates: start: 20210708
  6. ASPICARD [Concomitant]
     Dates: start: 20210708
  7. BRILINTA [Suspect]
     Active Substance: TICAGRELOR
     Indication: MYOCARDIAL INFARCTION
     Dosage: ONCE EVERY TWO DAYS.
     Route: 048
  8. NOLPAZA [Concomitant]
     Active Substance: PANTOPRAZOLE SODIUM
     Dates: start: 20210708
  9. INDAPAMIDE. [Concomitant]
     Active Substance: INDAPAMIDE
     Dates: start: 20210708

REACTIONS (3)
  - Off label use [Not Recovered/Not Resolved]
  - Myocardial ischaemia [Not Recovered/Not Resolved]
  - Blood pressure decreased [Recovering/Resolving]

NARRATIVE: CASE EVENT DATE: 20210718
